FAERS Safety Report 9128387 (Version 1)
Quarter: 2013Q1

REPORT INFORMATION
  Report Type: Spontaneous
  Country: US (occurrence: US)
  Receive Date: 20130228
  Receipt Date: 20130228
  Transmission Date: 20140127
  Serious: No
  Sender: FDA-Public Use
  Company Number: US-GLAXOSMITHKLINE-A0975616A

PATIENT
  Age: 54 Year
  Sex: Female
  Weight: 63.2 kg

DRUGS (6)
  1. IMITREX [Suspect]
     Indication: MIGRAINE
     Route: 065
  2. PREDNISONE [Concomitant]
     Indication: ADDISON^S DISEASE
     Dosage: 7.5MG PER DAY
  3. FLORINEF [Concomitant]
     Indication: ADDISON^S DISEASE
     Dosage: .1MG FIVE TIMES PER WEEK
  4. TRILEPTAL [Concomitant]
     Indication: BLOOD CHOLESTEROL INCREASED
     Dosage: 135MG PER DAY
  5. VYTORIN [Concomitant]
     Indication: BLOOD CHOLESTEROL INCREASED
  6. LEVOTHYROXINE SODIUM [Concomitant]
     Indication: THYROID DISORDER
     Dosage: .112MG PER DAY

REACTIONS (4)
  - Drug ineffective [Unknown]
  - Migraine [Unknown]
  - Vomiting [Unknown]
  - Nausea [Unknown]
